FAERS Safety Report 18382163 (Version 1)
Quarter: 2020Q4

REPORT INFORMATION
  Report Type: Spontaneous
  Country: AU (occurrence: AU)
  Receive Date: 20201014
  Receipt Date: 20201014
  Transmission Date: 20210114
  Serious: Yes (Hospitalization, Other)
  Sender: FDA-Public Use
  Company Number: AU-JAZZ-2020-AU-013155

PATIENT

DRUGS (1)
  1. DEFITELIO [Suspect]
     Active Substance: DEFIBROTIDE SODIUM
     Indication: PROPHYLAXIS
     Dosage: UNKNOWN DOSE

REACTIONS (5)
  - Seizure [Unknown]
  - Venoocclusive disease [Unknown]
  - Off label use [Unknown]
  - Renal impairment [Unknown]
  - Multi-organ disorder [Unknown]

NARRATIVE: CASE EVENT DATE: 202009
